FAERS Safety Report 5675664-5 (Version None)
Quarter: 2008Q1

REPORT INFORMATION
  Report Type: 
  Country: None (occurrence: None)
  Receive Date: 20080317
  Receipt Date: 20080305
  Transmission Date: 20080703
  Serious: Yes (Hospitalization)
  Sender: FDA-Public Use
  Company Number: 100#08#2008-01260

PATIENT
  Age: 38 Year
  Sex: Female

DRUGS (1)
  1. CARBAMAZEPINE [Suspect]
     Indication: EPILEPSY
     Dosage: 200 MG TWICE DAILY

REACTIONS (8)
  - DRY MOUTH [None]
  - DRY SKIN [None]
  - FLUSHING [None]
  - MICTURITION URGENCY [None]
  - URINARY HESITATION [None]
  - URINARY INCONTINENCE [None]
  - URINARY RETENTION [None]
  - URINE FLOW DECREASED [None]
